FAERS Safety Report 26216367 (Version 1)
Quarter: 2025Q4

REPORT INFORMATION
  Report Type: Spontaneous
  Country: GB (occurrence: GB)
  Receive Date: 20251231
  Receipt Date: 20251231
  Transmission Date: 20260118
  Serious: Yes (Other)
  Sender: TEVA
  Company Number: GB-002147023-NVSC2021GB201283

PATIENT
  Age: 71 Year
  Sex: Female

DRUGS (2)
  1. CLONAZEPAM [Suspect]
     Active Substance: CLONAZEPAM
     Indication: Seizure
     Dosage: UNK, BID (MORNING AND EVENING)
     Route: 065
  2. TEGRETOL [Suspect]
     Active Substance: CARBAMAZEPINE
     Indication: Epilepsy with myoclonic-atonic seizures
     Dosage: (400 PR TABLET IN THE MORNING AND EVENING, 200 MG IN THE MIDDAY ONCE)
     Route: 065
     Dates: start: 1976

REACTIONS (4)
  - Tunnel vision [Recovered/Resolved]
  - Product label confusion [Recovered/Resolved]
  - Ill-defined disorder [Recovered/Resolved]
  - Seizure [Recovered/Resolved]
